FAERS Safety Report 14427213 (Version 2)
Quarter: 2019Q1

REPORT INFORMATION
  Report Type: Spontaneous
  Country: US (occurrence: US)
  Receive Date: 20180123
  Receipt Date: 20190303
  Transmission Date: 20190417
  Serious: No
  Sender: FDA-Public Use
  Company Number: US-IMPAX LABORATORIES, INC-2017-IPXL-02989

PATIENT
  Age: 66 Year
  Sex: Female
  Weight: 73 kg

DRUGS (4)
  1. RYTARY [Suspect]
     Active Substance: CARBIDOPA\LEVODOPA
     Dosage: 23.75/95MG, 3 CAPSULE, THREE TIMES DAILY (EVERY 6 HOUR INTERVAL)
     Route: 048
     Dates: start: 201710, end: 2017
  2. RYTARY [Suspect]
     Active Substance: CARBIDOPA\LEVODOPA
     Dosage: 23.75/95MG, 3 CAPSULE, THREE TIMES DAILY (EVERY 5 HOUR INTERVAL)
     Route: 048
     Dates: start: 2017
  3. ROPINIROLE. [Concomitant]
     Active Substance: ROPINIROLE
     Indication: PARKINSON^S DISEASE
     Dosage: UNK
     Route: 065
  4. RYTARY [Suspect]
     Active Substance: CARBIDOPA\LEVODOPA
     Indication: PARKINSON^S DISEASE
     Dosage: 23.75/95MG, 1 CAPSULE, THREE TIMES DAILY
     Route: 048
     Dates: start: 201710, end: 201710

REACTIONS (5)
  - Drug effect delayed [Not Recovered/Not Resolved]
  - Delusion [Unknown]
  - Therapeutic response shortened [Not Recovered/Not Resolved]
  - Hallucination [Unknown]
  - Accidental underdose [Unknown]

NARRATIVE: CASE EVENT DATE: 201710
